FAERS Safety Report 8159853-6 (Version None)
Quarter: 2012Q1

REPORT INFORMATION
  Report Type: 
  Country: None (occurrence: None)
  Receive Date: 20120223
  Receipt Date: 20120215
  Transmission Date: 20120608
  Serious: Yes (Hospitalization)
  Sender: FDA-Public Use
  Company Number: JP-MERCK-1201USA02759

PATIENT
  Age: 77 Year
  Sex: Male
  Weight: 70 kg

DRUGS (10)
  1. MICARDIS [Concomitant]
     Route: 048
  2. SIGMART [Concomitant]
     Route: 048
  3. MUCOSTA [Concomitant]
     Route: 048
  4. TRICOR [Concomitant]
     Route: 048
  5. EPINASTINE HYDROCHLORIDE [Concomitant]
     Route: 048
  6. PROTECADIN [Concomitant]
     Route: 048
     Dates: end: 20120112
  7. JANUVIA [Suspect]
     Route: 048
  8. METFORMIN HCL [Concomitant]
     Route: 048
     Dates: end: 20120112
  9. JANUVIA [Suspect]
     Indication: DIABETES MELLITUS
     Route: 048
     Dates: start: 20120105, end: 20120112
  10. AMARYL [Concomitant]
     Route: 048
     Dates: end: 20120112

REACTIONS (3)
  - LOSS OF CONSCIOUSNESS [None]
  - HYPOGLYCAEMIA [None]
  - BLOOD GLUCOSE DECREASED [None]
